FAERS Safety Report 8620288-0 (Version None)
Quarter: 2012Q3

REPORT INFORMATION
  Report Type: 
  Country: None (occurrence: None)
  Receive Date: 20120817
  Receipt Date: 20120817
  Transmission Date: 20120928
  Serious: Yes (Hospitalization)
  Sender: FDA-Public Use
  Company Number: None

PATIENT
  Sex: Female

DRUGS (1)
  1. RIBAVIRIN [Suspect]
     Indication: HEPATITIS
     Dosage: 200MG TWICE DALY PO
     Route: 048
     Dates: start: 20120215, end: 20120712

REACTIONS (4)
  - DEHYDRATION [None]
  - FUNGAL INFECTION [None]
  - ANAEMIA [None]
  - PNEUMONIA [None]
